FAERS Safety Report 4874157-2 (Version None)
Quarter: 2006Q1

REPORT INFORMATION
  Report Type: 
  Country: None (occurrence: None)
  Receive Date: 20060106
  Receipt Date: 20051216
  Transmission Date: 20060701
  Serious: Yes (Hospitalization, Other)
  Sender: FDA-Public Use
  Company Number: BE-GLAXOSMITHKLINE-B0404111A

PATIENT
  Age: 50 Year
  Sex: Male

DRUGS (9)
  1. ZYBAN [Suspect]
     Indication: SMOKING CESSATION THERAPY
     Route: 048
     Dates: start: 20051202
  2. NEBIVOLOL HCL [Concomitant]
     Dosage: .5TAB PER DAY
     Route: 048
  3. CO-DIOVANE [Concomitant]
  4. SYMBICORT [Concomitant]
     Dosage: 4PUFF PER DAY
  5. LIPITOR [Concomitant]
     Dosage: 10MG PER DAY
     Route: 048
  6. ELTHYRONE [Concomitant]
     Dosage: 175MG PER DAY
     Route: 048
  7. MEDROL [Concomitant]
  8. ANTIBIOTICS [Concomitant]
  9. AMIODARONE [Concomitant]
     Dosage: 1TAB PER DAY
     Route: 048

REACTIONS (10)
  - ARTHRALGIA [None]
  - BLISTER [None]
  - DEHYDRATION [None]
  - DERMATITIS BULLOUS [None]
  - OEDEMA PERIPHERAL [None]
  - PRURITUS [None]
  - RASH [None]
  - RASH GENERALISED [None]
  - RASH PRURITIC [None]
  - SKIN LESION [None]
